FAERS Safety Report 5510185-1 (Version None)
Quarter: 2007Q4

REPORT INFORMATION
  Report Type: 
  Country: None (occurrence: None)
  Receive Date: 20071108
  Receipt Date: 20071030
  Transmission Date: 20080405
  Serious: Yes (Other)
  Sender: FDA-Public Use
  Company Number: GB-ROCHE-525343

PATIENT
  Age: 45 Year
  Sex: Female
  Weight: 115.6 kg

DRUGS (2)
  1. ORLISTAT [Suspect]
     Indication: OBESITY
     Route: 048
     Dates: start: 20070929
  2. ANTIDEPRESSANTS [Concomitant]

REACTIONS (1)
  - SUICIDAL IDEATION [None]
